FAERS Safety Report 7500204-5 (Version None)
Quarter: 2011Q2

REPORT INFORMATION
  Report Type: 
  Country: None (occurrence: None)
  Receive Date: 20110524
  Receipt Date: 20100622
  Transmission Date: 20111010
  Serious: No
  Sender: FDA-Public Use
  Company Number: US-NOVEN-ALL1-2010-02223

PATIENT

DRUGS (5)
  1. SEROQUEL [Concomitant]
     Dosage: 200 MG, 1X/DAY:QD
     Route: 048
     Dates: start: 20070101
  2. DAYTRANA [Suspect]
     Dosage: UNK MG, 1X/DAY:QD
     Route: 062
     Dates: start: 20060101, end: 20060101
  3. PROPRANOLOL [Concomitant]
     Dosage: UNK MG, 1X/DAY:QD
     Route: 048
     Dates: start: 20100101
  4. CLONIDINE [Concomitant]
     Dosage: .2 MG, 1X/DAY:QD (2) .1 MG TABLETS DAILY
     Route: 048
     Dates: start: 20020101
  5. DAYTRANA [Suspect]
     Dosage: 10 MG, 1X/DAY:QD
     Route: 062
     Dates: start: 20100331

REACTIONS (5)
  - APPLICATION SITE URTICARIA [None]
  - APPLICATION SITE ERYTHEMA [None]
  - APPLICATION SITE PRURITUS [None]
  - APPLICATION SITE IRRITATION [None]
  - APPLICATION SITE PAIN [None]
